FAERS Safety Report 21886536 (Version 4)
Quarter: 2023Q2

REPORT INFORMATION
  Report Type: Spontaneous
  Country: US (occurrence: US)
  Receive Date: 20230119
  Receipt Date: 20230613
  Transmission Date: 20230722
  Serious: No
  Sender: FDA-Public Use
  Company Number: US-BRISTOL-MYERS SQUIBB COMPANY-2023-008801

PATIENT
  Age: 81 Year
  Sex: Female
  Weight: 57 kg

DRUGS (1)
  1. REVLIMID [Suspect]
     Active Substance: LENALIDOMIDE
     Indication: Plasma cell myeloma
     Dosage: FREQUENCY: D 1-21 Q 28 DAYS
     Route: 048
     Dates: start: 20210526

REACTIONS (4)
  - Urinary tract infection [Recovering/Resolving]
  - Infection [Not Recovered/Not Resolved]
  - Swelling [Not Recovered/Not Resolved]
  - Menstrual disorder [Recovered/Resolved]

NARRATIVE: CASE EVENT DATE: 20230529
